FAERS Safety Report 5313345-8 (Version None)
Quarter: 2007Q2

REPORT INFORMATION
  Report Type: 
  Country: None (occurrence: None)
  Receive Date: 20070501
  Receipt Date: 20070418
  Transmission Date: 20071010
  Serious: Yes (Death, Hospitalization)
  Sender: FDA-Public Use
  Company Number: 2007SE00250

PATIENT
  Age: 838 Month
  Sex: Male
  Weight: 101 kg

DRUGS (3)
  1. ROSUVASTATIN [Suspect]
     Indication: CARDIOVASCULAR EVENT PROPHYLAXIS
     Route: 048
     Dates: start: 20060725
  2. AMITRIPTYLINE HCL [Concomitant]
     Indication: NEURODERMATITIS
     Route: 048
     Dates: start: 20060810
  3. RIFAFOUR [Concomitant]
     Indication: TUBERCULOSIS
     Dosage: 5 TABS
     Route: 048
     Dates: start: 20060810

REACTIONS (1)
  - CRYPTOGENIC ORGANISING PNEUMONIA [None]
